FAERS Safety Report 5194877-2 (Version None)
Quarter: 2006Q4

REPORT INFORMATION
  Report Type: 
  Country: None (occurrence: None)
  Receive Date: 20061229
  Receipt Date: 20060926
  Transmission Date: 20070319
  Serious: Yes (Other)
  Sender: FDA-Public Use
  Company Number: US-BRISTOL-MYERS SQUIBB COMPANY-13522149

PATIENT
  Age: 70 Year
  Sex: Male
  Weight: 88 kg

DRUGS (5)
  1. SPRYCEL [Suspect]
     Indication: CHRONIC MYELOID LEUKAEMIA
     Route: 048
     Dates: start: 20060901
  2. GLUCOTROL [Concomitant]
  3. VASOTEC [Concomitant]
  4. ZOCOR [Concomitant]
  5. AUGMENTIN '125' [Concomitant]
     Indication: SINUSITIS

REACTIONS (5)
  - ANOREXIA [None]
  - DIARRHOEA [None]
  - FATIGUE [None]
  - PERIORBITAL OEDEMA [None]
  - WEIGHT DECREASED [None]
